FAERS Safety Report 16746860 (Version 1)
Quarter: 2019Q3

REPORT INFORMATION
  Report Type: Spontaneous
  Country: GB (occurrence: GB)
  Receive Date: 20190827
  Receipt Date: 20190827
  Transmission Date: 20191005
  Serious: Yes (Other)
  Sender: FDA-Public Use
  Company Number: GB-PFIZER INC-2019362276

PATIENT
  Age: 81 Year
  Sex: Female
  Weight: 68 kg

DRUGS (30)
  1. SALBUTAMOL [Concomitant]
     Active Substance: ALBUTEROL
     Dosage: 2 DF, AS NEEDED (PUFFS)
     Route: 055
     Dates: start: 20190329, end: 20190426
  2. ATORVASTATIN [Concomitant]
     Active Substance: ATORVASTATIN
     Dosage: 1 DF, DAILY, AT NIGHT.
     Dates: start: 20181130
  3. CLONAZEPAM. [Concomitant]
     Active Substance: CLONAZEPAM
     Dosage: ONE OR TWO A DAY AS REQUIRED.
     Dates: start: 20181130
  4. LINAGLIPTIN [Concomitant]
     Active Substance: LINAGLIPTIN
     Dosage: 1 DF, DAILY
     Dates: start: 20181130
  5. CLINDAMYCIN. [Concomitant]
     Active Substance: CLINDAMYCIN
     Dosage: 4 DF, DAILY
     Dates: start: 20190501, end: 20190508
  6. NICORANDIL [Concomitant]
     Active Substance: NICORANDIL
     Dosage: 2 DF, DAILY
     Dates: start: 20181130, end: 20190423
  7. DERMOL [BENZALKONIUM CHLORIDE;CHLORHEXIDINE HYDROCHLORIDE;ISOPROPYL MY [Concomitant]
     Dosage: UNK (AS DIRECTED)
     Dates: start: 20181130
  8. GLYCERYL TRINITRATE [Concomitant]
     Active Substance: NITROGLYCERIN
     Indication: CHEST PAIN
     Dosage: 1-2 PUFFS AS NEEDED UNDER TONGUE FOR CHEST PAIN
     Route: 060
     Dates: start: 20181130
  9. LAXIDO [Concomitant]
     Active Substance: POLYETHYLENE GLYCOL 3350\POTASSIUM CHLORIDE\SODIUM BICARBONATE\SODIUM CHLORIDE
     Dosage: UNK, DAILY (TAKE 1-2  PER DAY)
     Dates: start: 20190423
  10. ADCAL [CALCIUM CARBONATE] [Concomitant]
     Dosage: 2 DF, DAILY
     Dates: start: 20190118
  11. CLOBETASONE BUTYRATE [Concomitant]
     Active Substance: CLOBETASONE BUTYRATE
     Dosage: APPLY 1-2 TIMES PER DAY OVER 1-2 WEEKS.
     Dates: start: 20190514
  12. DOXYCYCLINE. [Concomitant]
     Active Substance: DOXYCYCLINE
     Dosage: TWO NOW THEN AS ABOVE
     Dates: start: 20190329, end: 20190405
  13. COLECALCIFEROL [Concomitant]
     Active Substance: CHOLECALCIFEROL
     Dosage: 1 DF, DAILY
     Dates: start: 20170927, end: 20190329
  14. HUMULIN L [Concomitant]
     Active Substance: INSULIN HUMAN
     Dosage: UNK (USE AS DIRECTED)
     Dates: start: 20180613, end: 20190329
  15. DOUBLEBASE [Concomitant]
     Active Substance: ISOPROPYL MYRISTATE\PARAFFIN
     Dosage: UNK, AS NEEDED
     Dates: start: 20181130
  16. SANATOGEN MULTIVITAMINS [Concomitant]
     Dosage: 1 DF, DAILY
     Dates: start: 20181130
  17. OMEPRAZOLE. [Concomitant]
     Active Substance: OMEPRAZOLE
     Dosage: 1 DF, DAILY
     Dates: start: 20181130
  18. PIRITON [Concomitant]
     Active Substance: CHLORPHENIRAMINE MALEATE
     Dosage: 1 DF, TAKE ONE, EVERY 4-6 HOURS
     Dates: start: 20190513
  19. EMULSIFYING WAX [Concomitant]
     Dosage: UNK (USE AS DIRECTED)
     Dates: start: 20190423
  20. CIPROFLOXACIN. [Concomitant]
     Active Substance: CIPROFLOXACIN
     Dosage: 2 DF, DAILY
     Dates: start: 20190228, end: 20190305
  21. MOMETASONE [Concomitant]
     Active Substance: MOMETASONE
     Dosage: UNK, DAILY
     Dates: start: 20190221, end: 20190321
  22. FERROUS SULFATE. [Concomitant]
     Active Substance: FERROUS SULFATE
     Dosage: 3 DF, DAILY
     Dates: start: 20190412, end: 20190510
  23. ACETYLSALICYLIC ACID [Concomitant]
     Active Substance: ASPIRIN
     Dosage: 1 DF, DAILY
     Dates: start: 20181130
  24. FUROSEMIDE. [Concomitant]
     Active Substance: FUROSEMIDE
     Dosage: 2 DF, DAILY, EACH MORNING.
     Dates: start: 20190319
  25. SPIRONOLACTONE. [Suspect]
     Active Substance: SPIRONOLACTONE
     Dosage: 12.5 MG, UNK
     Dates: start: 20190329
  26. FLUCLOXACILLIN [Concomitant]
     Active Substance: FLUCLOXACILLIN
     Dosage: 4 DF, DAILY
     Dates: start: 20190228, end: 20190228
  27. BISOPROLOL [Concomitant]
     Active Substance: BISOPROLOL
     Dosage: 1 DF, DAILY, IN THE MORNING.
     Dates: start: 20181130
  28. PREDNISOLONE. [Concomitant]
     Active Substance: PREDNISOLONE
     Dosage: 30 MG, DAILY
     Dates: start: 20190514
  29. FERROUS FUMARATE [Concomitant]
     Active Substance: FERROUS FUMARATE
     Dosage: 3 DF, DAILY
     Dates: start: 20190118, end: 20190416
  30. HYDROCORTISONE. [Concomitant]
     Active Substance: HYDROCORTISONE
     Dosage: 2 DF, DAILY
     Dates: start: 20190503

REACTIONS (2)
  - Rash generalised [Recovering/Resolving]
  - Stevens-Johnson syndrome [Unknown]

NARRATIVE: CASE EVENT DATE: 20190516
